FAERS Safety Report 5444611-3 (Version None)
Quarter: 2007Q3

REPORT INFORMATION
  Report Type: 
  Country: None (occurrence: None)
  Receive Date: 20070904
  Receipt Date: 20070904
  Transmission Date: 20080115
  Serious: Yes (Other)
  Sender: FDA-Public Use
  Company Number: None

PATIENT
  Age: 57 Year
  Sex: Female
  Weight: 74.8435 kg

DRUGS (3)
  1. AGGRENOX [Suspect]
     Indication: CEREBROVASCULAR ACCIDENT
     Dates: start: 20070529, end: 20070529
  2. AGGRENOX [Suspect]
     Indication: PROPHYLAXIS
     Dates: start: 20070529, end: 20070529
  3. OTC VITAMINS [Concomitant]

REACTIONS (6)
  - CHILLS [None]
  - DIZZINESS [None]
  - FEELING COLD [None]
  - HEADACHE [None]
  - HYPOAESTHESIA FACIAL [None]
  - VOMITING [None]
